FAERS Safety Report 18843829 (Version 1)
Quarter: 2021Q1

REPORT INFORMATION
  Report Type: Spontaneous
  Country: US (occurrence: US)
  Receive Date: 20210204
  Receipt Date: 20210204
  Transmission Date: 20210419
  Serious: No
  Sender: FDA-Public Use
  Company Number: None

PATIENT
  Age: 77 Year
  Sex: Male
  Weight: 81 kg

DRUGS (18)
  1. ATORVASTATIN 40MG [Concomitant]
     Active Substance: ATORVASTATIN
  2. DICLOFENAC SODIUM 1% [Concomitant]
  3. LUPRON DEPOT [Concomitant]
     Active Substance: LEUPROLIDE ACETATE
  4. CYANOCOBALAMIN 2500MCG [Concomitant]
  5. CARVEDILOL. [Concomitant]
     Active Substance: CARVEDILOL
  6. MUCINEX 1200MG [Concomitant]
  7. ALPRAZOLAM 0.25MG [Concomitant]
     Active Substance: ALPRAZOLAM
  8. METANX [Concomitant]
     Active Substance: LEVOMEFOLATE CALCIUM\METHYLCOBALAMIN\PYRIDOXAL PHOSPHATE ANHYDROUS
  9. VITAMIN B12 [Concomitant]
     Active Substance: CYANOCOBALAMIN
  10. DICLOFENAC SODIUM 75MG [Concomitant]
     Active Substance: DICLOFENAC SODIUM
  11. ABIRATERONE ACETATE. [Suspect]
     Active Substance: ABIRATERONE ACETATE
     Indication: PROSTATE CANCER
     Route: 048
     Dates: start: 20210113
  12. AMLODIPINE [Concomitant]
     Active Substance: AMLODIPINE BESYLATE
  13. FISH OIL [Concomitant]
     Active Substance: FISH OIL
  14. ASPIRIN 81MG [Concomitant]
     Active Substance: ASPIRIN
  15. VITAMIN D3 3000UNITS [Concomitant]
  16. GLUCOSAMINE CHONDROITIN 500?400MG [Concomitant]
  17. PREDNISONE. [Suspect]
     Active Substance: PREDNISONE
     Indication: PROSTATE CANCER
     Route: 048
     Dates: start: 20210113
  18. CORTENEMA 100MG/60ML [Concomitant]

REACTIONS (2)
  - Headache [None]
  - Dizziness [None]

NARRATIVE: CASE EVENT DATE: 20210204
